FAERS Safety Report 9774349 (Version 1)
Quarter: 2013Q4

REPORT INFORMATION
  Report Type: Spontaneous
  Country: CH (occurrence: CH)
  Receive Date: 20131220
  Receipt Date: 20131220
  Transmission Date: 20140711
  Serious: Yes (Death)
  Sender: FDA-Public Use
  Company Number: CH-ROCHE-1322846

PATIENT
  Age: 60 Year
  Sex: Female

DRUGS (2)
  1. AVASTIN [Suspect]
     Indication: METASTATIC MALIGNANT MELANOMA
     Route: 042
  2. TEMODAL [Concomitant]
     Indication: METASTATIC MALIGNANT MELANOMA

REACTIONS (1)
  - Disease progression [Fatal]
